FAERS Safety Report 17246663 (Version 3)
Quarter: 2020Q1

REPORT INFORMATION
  Report Type: Spontaneous
  Country: US (occurrence: US)
  Receive Date: 20200108
  Receipt Date: 20200210
  Transmission Date: 20200409
  Serious: No
  Sender: FDA-Public Use
  Company Number: US-PFIZER INC-2020003991

PATIENT
  Age: 51 Year
  Sex: Male
  Weight: 98 kg

DRUGS (1)
  1. DEPO-TESTOSTERONE [Suspect]
     Active Substance: TESTOSTERONE CYPIONATE
     Indication: HYPOTHYROIDISM
     Dosage: 1 MG, WEEKLY (1CC SHOT, ONCE A WEEK)
     Route: 030
     Dates: start: 20191224

REACTIONS (6)
  - Off label use [Unknown]
  - Endocrine disorder [Unknown]
  - Feeling of body temperature change [Unknown]
  - Drug ineffective for unapproved indication [Unknown]
  - Suspected counterfeit product [Unknown]
  - Intentional dose omission [Unknown]
